FAERS Safety Report 5798178-0 (Version None)
Quarter: 2008Q3

REPORT INFORMATION
  Report Type: 
  Country: None (occurrence: None)
  Receive Date: 20080702
  Receipt Date: 20080624
  Transmission Date: 20090109
  Serious: Yes (Other)
  Sender: FDA-Public Use
  Company Number: A0734542A

PATIENT
  Age: 50 Year
  Sex: Female

DRUGS (6)
  1. LAMICTAL [Suspect]
     Indication: BIPOLAR DISORDER
     Dosage: 350MG PER DAY
     Route: 048
  2. LEXAPRO [Suspect]
     Dosage: 5MG PER DAY
     Route: 065
     Dates: start: 20071213
  3. LITHIUM CARBONATE [Suspect]
     Dosage: 2700MG PER DAY
     Route: 065
     Dates: start: 20040901, end: 20070601
  4. SYNTHROID [Concomitant]
     Dates: start: 20060101
  5. KLONOPIN [Concomitant]
  6. TOPAMAX [Concomitant]

REACTIONS (4)
  - ACCIDENTAL OVERDOSE [None]
  - HYPERTHYROIDISM [None]
  - VISION BLURRED [None]
  - WEIGHT INCREASED [None]
